FAERS Safety Report 14311963 (Version 1)
Quarter: 2017Q4

REPORT INFORMATION
  Report Type: Spontaneous
  Country: US (occurrence: US)
  Receive Date: 20171221
  Receipt Date: 20171221
  Transmission Date: 20180321
  Serious: No
  Sender: FDA-Public Use
  Company Number: US-TEVA-727906ACC

PATIENT
  Age: 93 Year
  Sex: Female
  Weight: 61.29 kg

DRUGS (2)
  1. BRIMONIDINE [Concomitant]
     Active Substance: BRIMONIDINE TARTRATE
  2. DORZOLAMIDE HYDROCHLORIDE. [Suspect]
     Active Substance: DORZOLAMIDE HYDROCHLORIDE
     Indication: GLAUCOMA
     Dosage: SOLUTION

REACTIONS (2)
  - Drug ineffective [Unknown]
  - Product deposit [Unknown]

NARRATIVE: CASE EVENT DATE: 201603
